FAERS Safety Report 8010842-1 (Version None)
Quarter: 2011Q4

REPORT INFORMATION
  Report Type: 
  Country: None (occurrence: None)
  Receive Date: 20111228
  Receipt Date: 20111223
  Transmission Date: 20120403
  Serious: Yes (Death)
  Sender: FDA-Public Use
  Company Number: IT-BAYER-2011-123635

PATIENT

DRUGS (2)
  1. ACETYLSALICYLIC ACID SRT [Suspect]
     Indication: ANTIPLATELET THERAPY
     Dosage: DAILY DOSE 100 MG
  2. CLOPIDOGREL [Suspect]

REACTIONS (1)
  - TRAUMATIC HAEMORRHAGE [None]
